FAERS Safety Report 10640311 (Version 1)
Quarter: 2014Q4

REPORT INFORMATION
  Report Type: Spontaneous
  Country: US (occurrence: None)
  Receive Date: 20141205
  Receipt Date: 20141205
  Transmission Date: 20150529
  Serious: Yes (Hospitalization)
  Sender: FDA-Public Use
  Company Number: 2014120019

PATIENT
  Age: 84 Year
  Sex: Female

DRUGS (10)
  1. MARCOUMAR [Suspect]
     Active Substance: PHENPROCOUMON
     Indication: ATRIAL FIBRILLATION
     Dosage: (3 MG, SEPARATE DOSAGES : 1 ), ORAL
     Route: 048
     Dates: end: 20140913
  2. TEBOKAN (GINKGO BILOBA EXTRACT) [Concomitant]
  3. TOREM (TORASEMIDE) [Suspect]
     Active Substance: TORSEMIDE
     Indication: PLEURAL EFFUSION
     Dosage: 10 MG (10 MG, 1 IN 1 D), ORAL
     Route: 048
     Dates: start: 201409, end: 201409
  4. MODURETIC 5-50 [Suspect]
     Active Substance: AMILORIDE HYDROCHLORIDE\HYDROCHLOROTHIAZIDE
     Indication: PLEURAL EFFUSION
     Route: 048
     Dates: end: 201409
  5. ZYLORIC (ALLOPURINOL) [Concomitant]
     Active Substance: ALLOPURINOL
  6. NEBILET (NEBIVOLOL HYDROCHLORIDE) [Concomitant]
  7. FAROS (CRATAEGUS LAEVIGATA EXTRACT) [Concomitant]
  8. APROVEL (IRBESARTAN) [Concomitant]
  9. METFIN (METFORMIN HYDROCHLORIDE) [Concomitant]
     Active Substance: METFORMIN HYDROCHLORIDE
  10. MAGNESIUM [Concomitant]
     Active Substance: MAGNESIUM

REACTIONS (8)
  - Somnolence [None]
  - Confusional state [None]
  - Dyspraxia [None]
  - Acute kidney injury [None]
  - Hydrocephalus [None]
  - Disorientation [None]
  - Asthenia [None]
  - Intraventricular haemorrhage [None]

NARRATIVE: CASE EVENT DATE: 201409
